FAERS Safety Report 4307714-2 (Version None)
Quarter: 2004Q1

REPORT INFORMATION
  Report Type: 
  Country: None (occurrence: None)
  Receive Date: 20040225
  Receipt Date: 20030516
  Transmission Date: 20041129
  Serious: Yes (Life-Threatening)
  Sender: FDA-Public Use
  Company Number: WAES 0305USA01946

PATIENT
  Age: 79 Year
  Sex: Female

DRUGS (3)
  1. ZOCOR [Suspect]
     Dosage: PO
     Route: 048
  2. PULMICORT [Concomitant]
  3. SEREVENT [Concomitant]

REACTIONS (1)
  - MUSCULOSKELETAL DISCOMFORT [None]
